FAERS Safety Report 23037454 (Version 2)
Quarter: 2023Q4

REPORT INFORMATION
  Report Type: Spontaneous
  Country: GB (occurrence: GB)
  Receive Date: 20231006
  Receipt Date: 20231215
  Transmission Date: 20240109
  Serious: Yes (Hospitalization, Other)
  Sender: FDA-Public Use
  Company Number: GB-AMGEN-GBRSP2023174944

PATIENT
  Age: 35 Year
  Sex: Female

DRUGS (1)
  1. ADALIMUMAB [Suspect]
     Active Substance: ADALIMUMAB\ISOPROPYL ALCOHOL
     Indication: Behcet^s syndrome
     Dosage: 40 MILLIGRAM, Q2WK
     Route: 058
     Dates: start: 2019

REACTIONS (2)
  - Meningitis [Unknown]
  - Off label use [Unknown]

NARRATIVE: CASE EVENT DATE: 20190101
